FAERS Safety Report 11115302 (Version 1)
Quarter: 2015Q2

REPORT INFORMATION
  Report Type: Spontaneous
  Country: US (occurrence: None)
  Receive Date: 20150513
  Receipt Date: 20150513
  Transmission Date: 20150821
  Serious: Yes (Life-Threatening, Other)
  Sender: FDA-Public Use
  Company Number: UCM201505-000325

PATIENT
  Age: 50 Year
  Sex: Female

DRUGS (1)
  1. HYDROCHLOROTHIAZIDE (HYDROCHLOROTHIAZIDE) (HYDROCHLOROTHIAZIDE) [Suspect]
     Active Substance: HYDROCHLOROTHIAZIDE
     Indication: HYPERTENSION

REACTIONS (4)
  - Viral infection [None]
  - Pericardial effusion [None]
  - Cardiac tamponade [None]
  - Type IV hypersensitivity reaction [None]
